FAERS Safety Report 7474634-4 (Version None)
Quarter: 2011Q1

REPORT INFORMATION
  Report Type: 
  Country: None (occurrence: None)
  Receive Date: 20110302
  Receipt Date: 20101115
  Transmission Date: 20110831
  Serious: Yes (Other)
  Sender: FDA-Public Use
  Company Number: 163-21880-10032832

PATIENT
  Age: 68 Year
  Sex: Female

DRUGS (10)
  1. REVLIMID [Suspect]
     Indication: MULTIPLE MYELOMA
     Dosage: SEE IMAGE
     Route: 048
     Dates: start: 20091030
  2. REVLIMID [Suspect]
     Indication: MULTIPLE MYELOMA
     Dosage: SEE IMAGE
     Route: 048
     Dates: start: 20100701
  3. REVLIMID [Suspect]
     Indication: MULTIPLE MYELOMA
     Dosage: SEE IMAGE
     Route: 048
     Dates: start: 20100201
  4. PILOCAN (PILOCARBINE HYDROCHLORIDE) [Concomitant]
  5. MULTI-VITAMINS [Concomitant]
  6. REVLIMID [Suspect]
  7. HERBAL (HERBAL PREPARATION) [Concomitant]
  8. WELCHOL [Concomitant]
  9. THYROID TAB [Concomitant]
  10. TRAVATAN [Concomitant]

REACTIONS (9)
  - DIZZINESS [None]
  - PAIN IN EXTREMITY [None]
  - DYSPNOEA [None]
  - CHEST PAIN [None]
  - CONSTIPATION [None]
  - MUSCLE SPASMS [None]
  - CATARACT [None]
  - FATIGUE [None]
  - OEDEMA PERIPHERAL [None]
